FAERS Safety Report 6508781-8 (Version None)
Quarter: 2009Q4

REPORT INFORMATION
  Report Type: 
  Country: None (occurrence: None)
  Receive Date: 20091221
  Receipt Date: 20091215
  Transmission Date: 20100525
  Serious: No
  Sender: FDA-Public Use
  Company Number: US-ELI_LILLY_AND_COMPANY-US200912004196

PATIENT
  Sex: Male

DRUGS (11)
  1. CIALIS [Suspect]
     Indication: ERECTILE DYSFUNCTION
     Dosage: 10 MG, OTHER
     Route: 065
     Dates: start: 20081201, end: 20091124
  2. TRAZODONE HCL [Concomitant]
     Dosage: 75 MG, UNKNOWN
     Route: 065
  3. ZETIA [Concomitant]
     Dosage: UNK, UNKNOWN
     Route: 065
  4. FLOMAX [Concomitant]
     Dosage: UNK, UNKNOWN
     Route: 065
  5. DHEA [Concomitant]
     Dosage: UNK, UNKNOWN
     Route: 065
  6. LESCOL [Concomitant]
     Dosage: UNK, UNKNOWN
     Route: 065
  7. TESTIM [Concomitant]
     Dosage: UNK, UNKNOWN
     Route: 065
  8. LEXAPRO [Concomitant]
     Dosage: UNK, UNKNOWN
     Route: 065
  9. TOPROL-XL [Concomitant]
     Dosage: UNK, UNKNOWN
     Route: 065
  10. CYPROHEPTADINE HCL [Concomitant]
     Dosage: UNK, UNKNOWN
     Route: 065
  11. FEXOFENADINE [Concomitant]
     Dosage: UNK, UNKNOWN
     Route: 065

REACTIONS (3)
  - EXOPHTHALMOS [None]
  - THERAPEUTIC RESPONSE DECREASED [None]
  - VISION BLURRED [None]
